FAERS Safety Report 4816589-4 (Version None)
Quarter: 2005Q4

REPORT INFORMATION
  Report Type: 
  Country: None (occurrence: None)
  Receive Date: 20051028
  Receipt Date: 20051014
  Transmission Date: 20060501
  Serious: Yes (Hospitalization)
  Sender: FDA-Public Use
  Company Number: 2005-02054

PATIENT
  Age: 60 Year
  Sex: Female
  Weight: 63.5 kg

DRUGS (5)
  1. VELCADE [Suspect]
     Indication: OVARIAN CANCER METASTATIC
     Dosage: 1.3 MG/M2, IV BOLUS
     Route: 040
     Dates: start: 20050930
  2. DOXIL [Concomitant]
  3. ZOFRAN [Concomitant]
  4. DECADRON [Concomitant]
  5. POTASSIUM (POTASSIUM) [Concomitant]

REACTIONS (2)
  - HEADACHE [None]
  - HYPERTENSION [None]
